FAERS Safety Report 5110642-6 (Version None)
Quarter: 2006Q3

REPORT INFORMATION
  Report Type: 
  Country: None (occurrence: None)
  Receive Date: 20060731
  Receipt Date: 20060612
  Transmission Date: 20061208
  Serious: No
  Sender: FDA-Public Use
  Company Number: 2006PV015440

PATIENT
  Age: 74 Year
  Sex: Female

DRUGS (1)
  1. BYETTA [Suspect]
     Indication: DIABETES MELLITUS NON-INSULIN-DEPENDENT
     Dosage: 5 MCG;BID;SC
     Route: 058
     Dates: start: 20060602

REACTIONS (7)
  - BACK PAIN [None]
  - CONSTIPATION [None]
  - DYSURIA [None]
  - FATIGUE [None]
  - HYPERSOMNIA [None]
  - POLLAKIURIA [None]
  - POLYDIPSIA [None]
